FAERS Safety Report 12992646 (Version 5)
Quarter: 2017Q4

REPORT INFORMATION
  Report Type: Report from Study
  Country: CN (occurrence: CN)
  Receive Date: 20161202
  Receipt Date: 20171017
  Transmission Date: 20180320
  Serious: Yes (Hospitalization)
  Sender: FDA-Public Use
  Company Number: CN-ROCHE-1858948

PATIENT
  Age: 59 Year
  Sex: Male
  Weight: 55 kg

DRUGS (42)
  1. MEZLOCILLIN SODIUM/SULBACTAM SODIUM [Concomitant]
     Active Substance: MEZLOCILLIN SODIUM\SULBACTAM SODIUM
     Route: 065
     Dates: start: 20161122, end: 20161129
  2. ATEZOLIZUMAB. [Suspect]
     Active Substance: ATEZOLIZUMAB
     Indication: NEOPLASM
     Dosage: DOSE OF LAST ATEZOLIZUMAB ADMINISTERED: 1200 MG?DATE OF MOST RECENT DOSE: 11/NOV/2016
     Route: 042
     Dates: start: 20161111
  3. SODIUM CHLORIDE. [Concomitant]
     Active Substance: SODIUM CHLORIDE
     Indication: BRONCHOSCOPY
     Dosage: PHYSIOLOGICAL SOLUTION
     Route: 065
     Dates: start: 20161120, end: 20161121
  4. CREATINE PHOSPHATE SODIUM [Concomitant]
     Active Substance: CREATINE
     Route: 065
     Dates: start: 20161120, end: 20161121
  5. FENTANYL. [Concomitant]
     Active Substance: FENTANYL
     Route: 065
     Dates: start: 20161125, end: 20161125
  6. SODIUM CHLORIDE. [Concomitant]
     Active Substance: SODIUM CHLORIDE
     Route: 065
     Dates: start: 20161207, end: 20161210
  7. MANNITOL. [Concomitant]
     Active Substance: MANNITOL
     Route: 065
     Dates: start: 20161120, end: 20161120
  8. CHUANKEZHI INJECTION [Concomitant]
     Route: 065
     Dates: start: 20161121, end: 20161129
  9. HAEMOCOAGULASE [Concomitant]
     Indication: HAEMOSTASIS
     Route: 065
     Dates: start: 20161125, end: 20161125
  10. PROPOFOL. [Concomitant]
     Active Substance: PROPOFOL
     Dosage: MEDIUM/LENGTH CHAIN FAT EMULSION
     Route: 065
     Dates: start: 20161120, end: 20161120
  11. INVERT SUGAR [Concomitant]
     Active Substance: INVERT SUGAR
     Route: 065
     Dates: start: 20161120, end: 20161129
  12. AMINO ACID [Concomitant]
     Active Substance: AMINO ACIDS
     Dosage: 18AA COMPOUND AMINO ACID
     Route: 065
     Dates: start: 20161208, end: 20161210
  13. FAT EMULSION NOS [Concomitant]
     Active Substance: EGG PHOSPHOLIPIDS\SAFFLOWER OIL\SOYBEAN OIL
     Route: 065
     Dates: start: 20161208, end: 20161210
  14. CODEINE [Concomitant]
     Active Substance: CODEINE
     Indication: ANALGESIC THERAPY
     Route: 065
     Dates: start: 20161125, end: 20161125
  15. KANGLAITE [Concomitant]
     Route: 065
     Dates: start: 20161122, end: 20161129
  16. SODIUM CHLORIDE. [Concomitant]
     Active Substance: SODIUM CHLORIDE
     Route: 065
     Dates: start: 20161120, end: 20161121
  17. COENZYME COMPLEX [Concomitant]
     Active Substance: UNSPECIFIED INGREDIENT
     Route: 065
     Dates: start: 20161120, end: 20161121
  18. FAT EMULSION NOS [Concomitant]
     Active Substance: EGG PHOSPHOLIPIDS\SAFFLOWER OIL\SOYBEAN OIL
     Route: 065
     Dates: start: 20161120, end: 20161122
  19. FAT EMULSION NOS [Concomitant]
     Active Substance: EGG PHOSPHOLIPIDS\SAFFLOWER OIL\SOYBEAN OIL
     Route: 065
     Dates: start: 20161121, end: 20161122
  20. TERBUTALINE [Concomitant]
     Active Substance: TERBUTALINE
     Indication: ASTHMA
  21. BROMHEXINE [Concomitant]
     Active Substance: BROMHEXINE
     Indication: PRODUCTIVE COUGH
     Route: 065
     Dates: start: 20161207, end: 20161210
  22. TPN [Concomitant]
     Active Substance: AMINO ACIDS\DEXTROSE\ELECTROLYTES NOS\SOYBEAN OIL
     Route: 065
     Dates: start: 20161120, end: 20161120
  23. STERILE WATER FOR INJECTION, USP [Concomitant]
     Route: 065
     Dates: start: 20161120, end: 20161121
  24. SODIUM CHLORIDE. [Concomitant]
     Active Substance: SODIUM CHLORIDE
     Indication: BLADDER IRRIGATION
     Route: 065
     Dates: start: 20161125, end: 20161125
  25. TERBUTALINE [Concomitant]
     Active Substance: TERBUTALINE
     Indication: COUGH
     Route: 065
     Dates: start: 20161121, end: 20161129
  26. AZTREONAM. [Concomitant]
     Active Substance: AZTREONAM
     Route: 065
     Dates: start: 20161207, end: 20161210
  27. KCL [Concomitant]
     Active Substance: POTASSIUM CHLORIDE
     Route: 065
     Dates: start: 20161120, end: 20161120
  28. INSULIN [Concomitant]
     Active Substance: INSULIN NOS
     Dosage: ANIMAL INSULIN INTRAVENOUS NUTRITION
     Route: 042
     Dates: start: 20161120, end: 20161120
  29. ETOMIDATE. [Concomitant]
     Active Substance: ETOMIDATE
     Dosage: FAT EMULSION
     Route: 065
     Dates: start: 20161120, end: 20161120
  30. GLUCOSE [Concomitant]
     Active Substance: DEXTROSE
  31. ESOMEPRAZOLE SODIUM. [Concomitant]
     Active Substance: ESOMEPRAZOLE SODIUM
     Route: 065
     Dates: start: 20161120, end: 20161121
  32. L-ALANYL-L-GLUTAMINE [Concomitant]
     Route: 065
     Dates: start: 20161120, end: 20161120
  33. AMINO ACID [Concomitant]
     Active Substance: AMINO ACIDS
     Route: 065
     Dates: start: 20161120, end: 20161122
  34. MAGNESIUM SULFATE. [Concomitant]
     Active Substance: MAGNESIUM SULFATE
     Route: 065
     Dates: start: 20161122, end: 20161129
  35. MIDAZOLAM [Concomitant]
     Active Substance: MIDAZOLAM HYDROCHLORIDE
     Route: 065
     Dates: start: 20161125, end: 20161125
  36. LIDOCAINE HYDROCHLORIDE. [Concomitant]
     Active Substance: LIDOCAINE HYDROCHLORIDE
     Indication: ANAESTHESIA
     Route: 065
     Dates: start: 20161125, end: 20161125
  37. HUMAN ALBUMIN [Concomitant]
     Active Substance: ALBUMIN HUMAN
     Route: 065
     Dates: start: 20161208, end: 20161209
  38. AMBROXOL [Concomitant]
     Active Substance: AMBROXOL
     Indication: PRODUCTIVE COUGH
     Route: 065
     Dates: start: 20161120, end: 20161129
  39. CEFOSELIS [Concomitant]
     Active Substance: CEFOSELIS
     Route: 065
     Dates: start: 20161120, end: 20161121
  40. DEXMEDETOMIDINE. [Concomitant]
     Active Substance: DEXMEDETOMIDINE
     Route: 065
     Dates: start: 20161120, end: 20161121
  41. AMINO ACID [Concomitant]
     Active Substance: AMINO ACIDS
     Route: 065
     Dates: start: 20161120, end: 20161120
  42. COMPOSITE POTASSIUM HYDROGEN PHOSPHATE [Concomitant]
     Route: 065
     Dates: start: 20161121, end: 20161122

REACTIONS (2)
  - Laryngeal oedema [Recovered/Resolved]
  - Shock [Recovered/Resolved]

NARRATIVE: CASE EVENT DATE: 20161119
